FAERS Safety Report 15634858 (Version 2)
Quarter: 2018Q4

REPORT INFORMATION
  Report Type: Spontaneous
  Country: TW (occurrence: TW)
  Receive Date: 20181119
  Receipt Date: 20181121
  Transmission Date: 20190205
  Serious: Yes (Other)
  Sender: FDA-Public Use
  Company Number: TW-VIFOR (INTERNATIONAL) INC.-VIT-2018-11463

PATIENT
  Age: 49 Year
  Sex: Female

DRUGS (3)
  1. FERROUS GLUCO-B [Concomitant]
  2. MIRCERA [Suspect]
     Active Substance: METHOXY POLYETHYLENE GLYCOL-EPOETIN BETA
     Indication: NEPHROGENIC ANAEMIA
     Route: 065
     Dates: start: 20170624
  3. INSULIN [Concomitant]
     Active Substance: INSULIN NOS
     Indication: DIABETES MELLITUS

REACTIONS (2)
  - Pyelonephritis chronic [Unknown]
  - Perinephric abscess [Unknown]

NARRATIVE: CASE EVENT DATE: 20170824
